FAERS Safety Report 23593488 (Version 1)
Quarter: 2024Q1

REPORT INFORMATION
  Report Type: Spontaneous
  Country: US (occurrence: US)
  Receive Date: 20240304
  Receipt Date: 20240304
  Transmission Date: 20240410
  Serious: No
  Sender: FDA-Public Use
  Company Number: US-ELI_LILLY_AND_COMPANY-US202402014202

PATIENT
  Age: 76 Year
  Sex: Male

DRUGS (1)
  1. HUMATROPE [Suspect]
     Active Substance: SOMATROPIN
     Indication: Product used for unknown indication
     Dosage: 6 MG, UNKNOWN
     Route: 065
     Dates: start: 2017, end: 202312

REACTIONS (4)
  - Sleep disorder [Unknown]
  - Fall [Unknown]
  - Impaired healing [Unknown]
  - Headache [Unknown]
